FAERS Safety Report 7584277-X (Version None)
Quarter: 2011Q2

REPORT INFORMATION
  Report Type: 
  Country: None (occurrence: None)
  Receive Date: 20110630
  Receipt Date: 20110624
  Transmission Date: 20111010
  Serious: Yes (Death, Hospitalization, Other)
  Sender: FDA-Public Use
  Company Number: US-ELI_LILLY_AND_COMPANY-US201104006446

PATIENT
  Age: 63 Year
  Sex: Male
  Weight: 104.76 kg

DRUGS (15)
  1. ALIMTA [Suspect]
     Indication: NON-SMALL CELL LUNG CANCER
     Dosage: 500 MG/M2, EVERY 21 DAYS
     Route: 042
     Dates: start: 20101207
  2. ALIMTA [Suspect]
     Dosage: 1100 MG, UNKNOWN
     Route: 042
     Dates: start: 20110118
  3. QUINAPRIL HCL [Concomitant]
     Dosage: UNK, UNKNOWN
     Route: 065
  4. INSULIN NPH                        /01223208/ [Concomitant]
     Dosage: UNK, UNKNOWN
     Route: 065
  5. METOPROLOL TARTRATE [Concomitant]
     Dosage: UNK, UNKNOWN
     Route: 065
  6. WARFARIN SODIUM [Concomitant]
     Dosage: UNK, UNKNOWN
     Route: 065
  7. VITAMIN B-12 [Concomitant]
     Dosage: 1000 UG, UNKNOWN
     Route: 042
  8. FOLIC ACID [Concomitant]
     Dosage: 1 MG, UNKNOWN
     Route: 048
  9. SIMVASTATIN [Concomitant]
     Dosage: UNK, UNKNOWN
     Route: 065
  10. CORTICOSTEROIDS [Concomitant]
     Dosage: 4 MG, UNK
     Route: 048
     Dates: start: 20100717
  11. METFORMIN HCL [Concomitant]
     Dosage: UNK, UNKNOWN
     Route: 065
  12. FUROSEMIDE [Concomitant]
     Dosage: UNK, UNKNOWN
     Route: 065
  13. ALIMTA [Suspect]
     Dosage: UNK
     Dates: start: 20110208
  14. CARBOPLATIN [Concomitant]
     Indication: NON-SMALL CELL LUNG CANCER
     Dosage: UNK
     Dates: start: 20101207, end: 20110329
  15. TYLENOL (CAPLET) [Concomitant]
     Dosage: UNK, UNKNOWN
     Route: 065

REACTIONS (3)
  - ACUTE RESPIRATORY FAILURE [None]
  - GENERAL PHYSICAL HEALTH DETERIORATION [None]
  - PNEUMONITIS [None]
